FAERS Safety Report 22379936 (Version 5)
Quarter: 2025Q2

REPORT INFORMATION
  Report Type: Report from Study
  Country: BR (occurrence: BR)
  Receive Date: 20230529
  Receipt Date: 20250417
  Transmission Date: 20250716
  Serious: Yes (Other)
  Sender: BOEHRINGER INGELHEIM
  Company Number: BR-BoehringerIngelheim-2023-BI-239256

PATIENT
  Age: 68 Year
  Sex: Female
  Weight: 69 kg

DRUGS (5)
  1. MICARDIS [Suspect]
     Active Substance: TELMISARTAN
     Indication: Hypertension
     Dosage: IN THE MORNING.
     Dates: start: 2013
  2. HYDROCHLOROTHIAZIDE [Concomitant]
     Active Substance: HYDROCHLOROTHIAZIDE
     Indication: Diuretic therapy
  3. ALPRAZOLAM [Concomitant]
     Active Substance: ALPRAZOLAM
     Indication: Sedative therapy
     Dosage: 1 TABLET A DAY AND 1 TABLET AT NIGHT.
  4. BECLOMETHASONE DIPROPIONATE [Concomitant]
     Active Substance: BECLOMETHASONE DIPROPIONATE
     Indication: Asthma
     Dosage: 1 MORNING AND 1 EVENING SPRAY.
  5. BECLOMETHASONE DIPROPIONATE [Concomitant]
     Active Substance: BECLOMETHASONE DIPROPIONATE
     Indication: Bronchitis

REACTIONS (14)
  - Glaucoma [Not Recovered/Not Resolved]
  - Tachycardia [Recovered/Resolved]
  - Hypersensitivity [Unknown]
  - Heart rate increased [Unknown]
  - Blood pressure increased [Unknown]
  - Drug hypersensitivity [Unknown]
  - Osteitis deformans [Not Recovered/Not Resolved]
  - Product quality issue [Unknown]
  - Anxiety [Recovered/Resolved]
  - Palpitations [Recovered/Resolved]
  - Nervousness [Not Recovered/Not Resolved]
  - Bone pain [Not Recovered/Not Resolved]
  - Product physical issue [Unknown]
  - Discomfort [Unknown]

NARRATIVE: CASE EVENT DATE: 20200101
